FAERS Safety Report 17881476 (Version 1)
Quarter: 2020Q2

REPORT INFORMATION
  Report Type: Spontaneous
  Country: US (occurrence: US)
  Receive Date: 20200610
  Receipt Date: 20200610
  Transmission Date: 20200714
  Serious: No
  Sender: FDA-Public Use
  Company Number: US-COLLEGIUM PHARMACEUTICAL, INC.-2020CGM00070

PATIENT
  Sex: Female

DRUGS (1)
  1. XTAMPZA ER [Suspect]
     Active Substance: OXYCODONE
     Indication: PAIN MANAGEMENT
     Dosage: UNK
     Route: 048
     Dates: start: 20200319

REACTIONS (8)
  - Oral pain [Not Recovered/Not Resolved]
  - Drug hypersensitivity [Unknown]
  - Unevaluable event [Not Recovered/Not Resolved]
  - Oral discomfort [Unknown]
  - Anxiety [Not Recovered/Not Resolved]
  - Contraindicated product prescribed [Unknown]
  - Lip pain [Not Recovered/Not Resolved]
  - Vomiting [Recovered/Resolved]

NARRATIVE: CASE EVENT DATE: 202003
